FAERS Safety Report 18715700 (Version 3)
Quarter: 2021Q2

REPORT INFORMATION
  Report Type: Report from Study
  Country: DE (occurrence: DE)
  Receive Date: 20210108
  Receipt Date: 20210610
  Transmission Date: 20210717
  Serious: Yes (Hospitalization, Other)
  Sender: FDA-Public Use
  Company Number: DE-UCBSA-2021000515

PATIENT
  Age: 27 Year
  Sex: Female
  Weight: 89 kg

DRUGS (21)
  1. CERTOLIZUMAB PEGOL [Suspect]
     Active Substance: CERTOLIZUMAB PEGOL
     Dosage: 200 MILLIGRAM
     Route: 058
     Dates: start: 20200528, end: 20200914
  2. HUMIRA [Concomitant]
     Active Substance: ADALIMUMAB
     Dosage: 40 MILLIGRAM
     Route: 058
     Dates: start: 20201020
  3. DERMOXIN [CLOBETASOL PROPIONATE] [Concomitant]
     Indication: PRODUCT USED FOR UNKNOWN INDICATION
     Dosage: TWICE DAILY FOR 1 WEEK
  4. MOMEGALEN [Concomitant]
     Active Substance: MOMETASONE FUROATE
     Indication: PSORIATIC ARTHROPATHY
     Dosage: TWICE DAILY
     Route: 061
     Dates: start: 20200827, end: 20200914
  5. UREA. [Concomitant]
     Active Substance: UREA
     Indication: PRODUCT USED FOR UNKNOWN INDICATION
  6. DOXYCYCLINE. [Concomitant]
     Active Substance: DOXYCYCLINE
     Indication: INFECTION
     Dosage: 100 MILLIGRAM, UNK
     Route: 048
     Dates: start: 20200914, end: 20200920
  7. LEVOCETIRIZINE [Concomitant]
     Active Substance: LEVOCETIRIZINE
     Dosage: 5 MILLIGRAM, UNK
  8. DITHRANOL;SALICYLIC ACID [Concomitant]
  9. ADVANTAN [Concomitant]
     Active Substance: METHYLPREDNISOLONE ACEPONATE
     Indication: PRODUCT USED FOR UNKNOWN INDICATION
     Dosage: 1 DAILY
  10. SALICYLIC ACID. [Concomitant]
     Active Substance: SALICYLIC ACID
     Indication: PRODUCT USED FOR UNKNOWN INDICATION
     Dosage: 5 PERCENT
  11. DAIVONEX [Concomitant]
     Active Substance: CALCIPOTRIENE
     Indication: PSORIASIS
     Dosage: ONCE DAILY FOR 1 WEEK
  12. CERTOLIZUMAB PEGOL [Suspect]
     Active Substance: CERTOLIZUMAB PEGOL
     Indication: PSORIATIC ARTHROPATHY
     Dosage: UNK
     Dates: start: 2019
  13. HUMIRA [Concomitant]
     Active Substance: ADALIMUMAB
     Indication: PRODUCT USED FOR UNKNOWN INDICATION
     Dosage: 80 MILLIGRAM, UNK
     Route: 058
     Dates: start: 20201020
  14. POLIDOCANOL. [Concomitant]
     Active Substance: POLIDOCANOL
     Indication: PRODUCT USED FOR UNKNOWN INDICATION
     Dosage: 5 PERCENT
  15. CLOBETASOL [Concomitant]
     Active Substance: CLOBETASOL
     Indication: PRODUCT USED FOR UNKNOWN INDICATION
  16. PSORALEN [Concomitant]
     Active Substance: PSORALEN
     Indication: PRODUCT USED FOR UNKNOWN INDICATION
     Dosage: UNK
  17. DAIVOBET [Concomitant]
     Active Substance: BETAMETHASONE DIPROPIONATE\CALCIPOTRIENE
     Indication: PSORIASIS
  18. BETAMETHASONE. [Concomitant]
     Active Substance: BETAMETHASONE
     Indication: PRODUCT USED FOR UNKNOWN INDICATION
  19. PROPYLENE GLYCOL [Concomitant]
     Active Substance: PROPYLENE GLYCOL
     Indication: PRODUCT USED FOR UNKNOWN INDICATION
  20. DAC [Concomitant]
     Indication: PRODUCT USED FOR UNKNOWN INDICATION
  21. CASTOR OIL. [Concomitant]
     Active Substance: CASTOR OIL
     Indication: PRODUCT USED FOR UNKNOWN INDICATION

REACTIONS (17)
  - Paradoxical drug reaction [Unknown]
  - SARS-CoV-1 test [Unknown]
  - Neutrophil count increased [Unknown]
  - Psoriatic arthropathy [Recovered/Resolved]
  - Pityriasis rosea [Unknown]
  - Lymphocyte count decreased [Unknown]
  - Skin infection [Recovering/Resolving]
  - Palmoplantar pustulosis [Recovered/Resolved]
  - Arthralgia [Unknown]
  - Alanine aminotransferase increased [Unknown]
  - White blood cell count increased [Unknown]
  - Onycholysis [Unknown]
  - Platelet count increased [Unknown]
  - Pustular psoriasis [Unknown]
  - C-reactive protein increased [Unknown]
  - Musculoskeletal stiffness [Unknown]
  - Drug eruption [Recovered/Resolved]

NARRATIVE: CASE EVENT DATE: 20200820
